FAERS Safety Report 21124815 (Version 1)
Quarter: 2022Q3

REPORT INFORMATION
  Report Type: Spontaneous
  Country: US (occurrence: None)
  Receive Date: 20220723
  Receipt Date: 20220723
  Transmission Date: 20221026
  Serious: Yes (Other)
  Sender: FDA-Public Use
  Company Number: None

PATIENT
  Age: 63 Year
  Sex: Female
  Weight: 63 kg

DRUGS (17)
  1. LAGEVRIO [Suspect]
     Active Substance: MOLNUPIRAVIR
     Indication: COVID-19 treatment
     Dosage: OTHER QUANTITY : 4 TABLET(S);?FREQUENCY : TWICE A DAY;?
     Route: 048
     Dates: start: 20220721, end: 20220723
  2. CHLORTHALIDONE [Concomitant]
     Active Substance: CHLORTHALIDONE
  3. DULOXETINE [Concomitant]
     Active Substance: DULOXETINE
  4. Progesterone Caps [Concomitant]
  5. Estradiol Patch [Concomitant]
  6. TELMISARTAN [Concomitant]
     Active Substance: TELMISARTAN
  7. LIOTHYRONINE SODIUM [Concomitant]
     Active Substance: LIOTHYRONINE SODIUM
  8. SYNTHROID [Concomitant]
     Active Substance: LEVOTHYROXINE SODIUM
  9. HYDROCODONE [Concomitant]
     Active Substance: HYDROCODONE
  10. VITAMIN D3 [Concomitant]
     Active Substance: CHOLECALCIFEROL
  11. VITAMIN E [Concomitant]
     Active Substance: .ALPHA.-TOCOPHEROL
  12. PRASTERONE [Concomitant]
     Active Substance: PRASTERONE
  13. VITAMIN B12 [Concomitant]
     Active Substance: CYANOCOBALAMIN
  14. FOLATE SODIUM [Concomitant]
     Active Substance: FOLATE SODIUM
  15. Magnesium Citramate [Concomitant]
  16. HERBALS [Concomitant]
     Active Substance: HERBALS
  17. SELENIUM [Concomitant]
     Active Substance: SELENIUM

REACTIONS (3)
  - Insomnia [None]
  - Initial insomnia [None]
  - Agitation [None]

NARRATIVE: CASE EVENT DATE: 20220723
